FAERS Safety Report 9457660 (Version 1)
Quarter: 2013Q3

REPORT INFORMATION
  Report Type: Spontaneous
  Country: US (occurrence: US)
  Receive Date: 20130814
  Receipt Date: 20130814
  Transmission Date: 20140515
  Serious: No
  Sender: FDA-Public Use
  Company Number: US-PFIZER INC-2013233041

PATIENT
  Age: 72 Year
  Sex: Female
  Weight: 54.42 kg

DRUGS (2)
  1. NORVASC [Suspect]
     Indication: HYPERTENSION
     Dosage: 2.5 MG, 2X/DAY
     Route: 048
  2. ALLEGRA [Concomitant]
     Indication: HYPERSENSITIVITY
     Dosage: 50 MG, 1X/DAY

REACTIONS (2)
  - Suspected counterfeit product [Unknown]
  - Blood pressure inadequately controlled [Recovered/Resolved]
